FAERS Safety Report 15728040 (Version 18)
Quarter: 2020Q1

REPORT INFORMATION
  Report Type: Report from Study
  Country: CN (occurrence: CN)
  Receive Date: 20181217
  Receipt Date: 20200211
  Transmission Date: 20200409
  Serious: Yes (Life-Threatening, Hospitalization)
  Sender: FDA-Public Use
  Company Number: CN-ROCHE-2213806

PATIENT
  Age: 54 Year
  Sex: Female
  Weight: 57 kg

DRUGS (125)
  1. LORATADINE. [Concomitant]
     Active Substance: LORATADINE
     Route: 065
     Dates: start: 20191211, end: 20191211
  2. DEXAMETHASONE SODIUM PHOSPHATE. [Concomitant]
     Active Substance: DEXAMETHASONE SODIUM PHOSPHATE
     Indication: ALLERGY PROPHYLAXIS
     Route: 042
     Dates: start: 20181015, end: 20181015
  3. DEXAMETHASONE SODIUM PHOSPHATE. [Concomitant]
     Active Substance: DEXAMETHASONE SODIUM PHOSPHATE
     Route: 042
     Dates: start: 20181105, end: 20181105
  4. DEXAMETHASONE SODIUM PHOSPHATE. [Concomitant]
     Active Substance: DEXAMETHASONE SODIUM PHOSPHATE
     Route: 030
     Dates: start: 20181112, end: 20181112
  5. DEXAMETHASONE SODIUM PHOSPHATE. [Concomitant]
     Active Substance: DEXAMETHASONE SODIUM PHOSPHATE
     Route: 042
     Dates: start: 20181226, end: 20181226
  6. DEXAMETHASONE SODIUM PHOSPHATE. [Concomitant]
     Active Substance: DEXAMETHASONE SODIUM PHOSPHATE
     Route: 042
     Dates: start: 20190722, end: 20190722
  7. DEXAMETHASONE SODIUM PHOSPHATE. [Concomitant]
     Active Substance: DEXAMETHASONE SODIUM PHOSPHATE
     Route: 042
     Dates: start: 20190901, end: 20190901
  8. DEXAMETHASONE SODIUM PHOSPHATE. [Concomitant]
     Active Substance: DEXAMETHASONE SODIUM PHOSPHATE
     Route: 042
     Dates: start: 20191215, end: 20191215
  9. OMEPRAZOLE SODIUM [Concomitant]
     Active Substance: OMEPRAZOLE SODIUM
     Indication: GASTROINTESTINAL DISORDER PROPHYLAXIS
     Route: 065
     Dates: start: 20181015, end: 20181018
  10. OMEPRAZOLE SODIUM [Concomitant]
     Active Substance: OMEPRAZOLE SODIUM
     Route: 065
     Dates: start: 20181226, end: 20181229
  11. OMEPRAZOLE SODIUM [Concomitant]
     Active Substance: OMEPRAZOLE SODIUM
     Route: 065
     Dates: start: 20190901, end: 20190901
  12. GLUTATHIONE REDUCED [Concomitant]
     Route: 065
     Dates: start: 20181105, end: 20181121
  13. GLUTATHIONE REDUCED [Concomitant]
     Route: 065
     Dates: start: 20190722, end: 20190722
  14. POLYENE PHOSPHATIDYLCHOLINE [Concomitant]
     Active Substance: PHOSPHOLIPID
     Route: 065
     Dates: start: 20181128, end: 20181203
  15. POLYENE PHOSPHATIDYLCHOLINE [Concomitant]
     Active Substance: PHOSPHOLIPID
     Route: 065
     Dates: start: 20190722, end: 20190722
  16. POLYENE PHOSPHATIDYLCHOLINE [Concomitant]
     Active Substance: PHOSPHOLIPID
     Route: 065
     Dates: start: 20191022, end: 20191024
  17. PIPERAZINE FERULATE [Concomitant]
     Indication: PROTEINURIA
     Route: 065
     Dates: start: 20191114, end: 20191114
  18. DEXAMETHASONE ACETATE [Concomitant]
     Active Substance: DEXAMETHASONE ACETATE
     Route: 048
     Dates: start: 20181225, end: 20181225
  19. LORATADINE. [Concomitant]
     Active Substance: LORATADINE
     Indication: ALLERGY PROPHYLAXIS
     Route: 065
     Dates: start: 20181015, end: 20181015
  20. LORATADINE. [Concomitant]
     Active Substance: LORATADINE
     Route: 065
     Dates: start: 20191226, end: 20191226
  21. CIMETIDINE [Concomitant]
     Active Substance: CIMETIDINE
     Route: 065
     Dates: start: 20181128, end: 20181128
  22. CIMETIDINE [Concomitant]
     Active Substance: CIMETIDINE
     Route: 065
     Dates: start: 20190812, end: 20190812
  23. CIMETIDINE [Concomitant]
     Active Substance: CIMETIDINE
     Route: 065
     Dates: start: 20190901, end: 20190901
  24. CIMETIDINE [Concomitant]
     Active Substance: CIMETIDINE
     Route: 065
     Dates: start: 20191114, end: 20191114
  25. DEXAMETHASONE SODIUM PHOSPHATE. [Concomitant]
     Active Substance: DEXAMETHASONE SODIUM PHOSPHATE
     Route: 042
     Dates: start: 20181116, end: 20181116
  26. DEXAMETHASONE SODIUM PHOSPHATE. [Concomitant]
     Active Substance: DEXAMETHASONE SODIUM PHOSPHATE
     Route: 042
     Dates: start: 20190701, end: 20190701
  27. DEXAMETHASONE SODIUM PHOSPHATE. [Concomitant]
     Active Substance: DEXAMETHASONE SODIUM PHOSPHATE
     Route: 042
     Dates: start: 20191211, end: 20191211
  28. DEXAMETHASONE SODIUM PHOSPHATE. [Concomitant]
     Active Substance: DEXAMETHASONE SODIUM PHOSPHATE
     Route: 042
     Dates: start: 20191219, end: 20191219
  29. OMEPRAZOLE SODIUM [Concomitant]
     Active Substance: OMEPRAZOLE SODIUM
     Route: 065
     Dates: start: 20191225, end: 20191225
  30. FUROSEMIDE. [Concomitant]
     Active Substance: FUROSEMIDE
     Route: 065
     Dates: start: 20181128, end: 20181128
  31. LACTULOSE. [Concomitant]
     Active Substance: LACTULOSE
     Route: 065
     Dates: start: 20181114, end: 20181114
  32. CEFOPERAZONE;SULBACTAM [Concomitant]
     Active Substance: CEFOPERAZONE\SULBACTAM
     Indication: INFECTION
     Route: 065
     Dates: start: 20191205, end: 20191220
  33. IRBESARTAN HYDROCHLOROTHIAZIDE [Concomitant]
     Active Substance: HYDROCHLOROTHIAZIDE\IRBESARTAN
     Indication: HYPOTENSION
     Route: 065
     Dates: start: 20190221
  34. VALSARTAN. [Concomitant]
     Active Substance: VALSARTAN
     Indication: HYPERTENSION
     Route: 065
     Dates: start: 20191114
  35. ADRENALIN HYDROCHLORIDE [Concomitant]
     Indication: HAEMOSTASIS
     Route: 065
     Dates: start: 20191206, end: 20191206
  36. BEVACIZUMAB. [Suspect]
     Active Substance: BEVACIZUMAB
     Indication: OVARIAN CANCER
     Dosage: DATE OF MOST RECENT DOSE OF BEVACIZUMAB PRIOR TO AE AND SAE MYELOSUPPRESSION ONSET: 05/NOV/2018?DATE
     Route: 042
     Dates: start: 20181015
  37. DEXAMETHASONE ACETATE [Concomitant]
     Active Substance: DEXAMETHASONE ACETATE
     Route: 048
     Dates: start: 20181127, end: 20181127
  38. LORATADINE. [Concomitant]
     Active Substance: LORATADINE
     Route: 065
     Dates: start: 20190722, end: 20190722
  39. LORATADINE. [Concomitant]
     Active Substance: LORATADINE
     Route: 065
     Dates: start: 20191205, end: 20191205
  40. LORATADINE. [Concomitant]
     Active Substance: LORATADINE
     Route: 065
     Dates: start: 20191225, end: 20191225
  41. CIMETIDINE [Concomitant]
     Active Substance: CIMETIDINE
     Route: 065
     Dates: start: 20191225, end: 20191225
  42. DEXAMETHASONE SODIUM PHOSPHATE. [Concomitant]
     Active Substance: DEXAMETHASONE SODIUM PHOSPHATE
     Route: 042
     Dates: start: 20190609, end: 20190609
  43. DEXAMETHASONE SODIUM PHOSPHATE. [Concomitant]
     Active Substance: DEXAMETHASONE SODIUM PHOSPHATE
     Route: 042
     Dates: start: 20190812, end: 20190812
  44. DEXAMETHASONE SODIUM PHOSPHATE. [Concomitant]
     Active Substance: DEXAMETHASONE SODIUM PHOSPHATE
     Route: 042
     Dates: start: 20191216, end: 20191216
  45. GLUTATHIONE REDUCED [Concomitant]
     Route: 065
     Dates: start: 20190609, end: 20190610
  46. FUROSEMIDE. [Concomitant]
     Active Substance: FUROSEMIDE
     Route: 065
     Dates: start: 20181105, end: 20181105
  47. LACTULOSE. [Concomitant]
     Active Substance: LACTULOSE
     Indication: CONSTIPATION
     Route: 065
     Dates: start: 20181105, end: 20181105
  48. SORBITOL. [Concomitant]
     Active Substance: SORBITOL
     Indication: CONSTIPATION
     Route: 065
     Dates: start: 20181114, end: 20181114
  49. POLYSACCHARIDE-IRON COMPLEX [Concomitant]
     Active Substance: FERRIC POLYSACCHARIDE COMPLEX
     Indication: ANAEMIA
     Route: 065
     Dates: start: 20181121
  50. PROMETHAZINE HYDROCHLORIDE. [Concomitant]
     Active Substance: PROMETHAZINE HYDROCHLORIDE
     Indication: CHILLS
     Route: 065
     Dates: start: 20191205, end: 20191205
  51. LIDOCAINE HYDROCHLORIDE. [Concomitant]
     Active Substance: LIDOCAINE HYDROCHLORIDE
     Route: 065
     Dates: start: 20191224, end: 20191224
  52. LORATADINE. [Concomitant]
     Active Substance: LORATADINE
     Route: 065
     Dates: start: 20190701, end: 20190701
  53. LORATADINE. [Concomitant]
     Active Substance: LORATADINE
     Route: 065
     Dates: start: 20191114, end: 20191114
  54. CIMETIDINE [Concomitant]
     Active Substance: CIMETIDINE
     Route: 065
     Dates: start: 20181105, end: 20181105
  55. DEXAMETHASONE SODIUM PHOSPHATE. [Concomitant]
     Active Substance: DEXAMETHASONE SODIUM PHOSPHATE
     Route: 042
     Dates: start: 20191225, end: 20191225
  56. PALONOSETRON. [Concomitant]
     Active Substance: PALONOSETRON HYDROCHLORIDE
     Route: 065
     Dates: start: 20181226, end: 20181226
  57. GLUTATHIONE REDUCED [Concomitant]
     Route: 065
     Dates: start: 20191022, end: 20191024
  58. IRON SUCROSE [Concomitant]
     Active Substance: IRON SUCROSE
     Indication: ANAEMIA
     Route: 065
     Dates: start: 20181014, end: 20181016
  59. IRON SUCROSE [Concomitant]
     Active Substance: IRON SUCROSE
     Route: 065
     Dates: start: 20181117, end: 20181119
  60. HEPARIN SODIUM. [Concomitant]
     Active Substance: HEPARIN SODIUM
     Route: 065
     Dates: start: 20191224, end: 20191224
  61. DEXAMETHASONE ACETATE [Concomitant]
     Active Substance: DEXAMETHASONE ACETATE
     Route: 048
     Dates: start: 20181104, end: 20181104
  62. LORATADINE. [Concomitant]
     Active Substance: LORATADINE
     Route: 065
     Dates: start: 20191022, end: 20191022
  63. CIMETIDINE [Concomitant]
     Active Substance: CIMETIDINE
     Indication: ALLERGY PROPHYLAXIS
     Route: 065
     Dates: start: 20181015, end: 20181015
  64. CIMETIDINE [Concomitant]
     Active Substance: CIMETIDINE
     Route: 065
     Dates: start: 20190609, end: 20190609
  65. CIMETIDINE [Concomitant]
     Active Substance: CIMETIDINE
     Route: 065
     Dates: start: 20191205, end: 20191205
  66. DEXAMETHASONE SODIUM PHOSPHATE. [Concomitant]
     Active Substance: DEXAMETHASONE SODIUM PHOSPHATE
     Route: 042
     Dates: start: 20181114, end: 20181114
  67. DEXAMETHASONE SODIUM PHOSPHATE. [Concomitant]
     Active Substance: DEXAMETHASONE SODIUM PHOSPHATE
     Route: 065
     Dates: start: 20191022, end: 20191022
  68. DEXAMETHASONE SODIUM PHOSPHATE. [Concomitant]
     Active Substance: DEXAMETHASONE SODIUM PHOSPHATE
     Route: 042
     Dates: start: 20191205, end: 20191205
  69. DEXAMETHASONE SODIUM PHOSPHATE. [Concomitant]
     Active Substance: DEXAMETHASONE SODIUM PHOSPHATE
     Route: 042
     Dates: start: 20191206, end: 20191206
  70. DEXAMETHASONE SODIUM PHOSPHATE. [Concomitant]
     Active Substance: DEXAMETHASONE SODIUM PHOSPHATE
     Route: 042
     Dates: start: 20191207, end: 20191207
  71. DEXAMETHASONE SODIUM PHOSPHATE. [Concomitant]
     Active Substance: DEXAMETHASONE SODIUM PHOSPHATE
     Route: 042
     Dates: start: 20191210, end: 20191210
  72. DEXAMETHASONE SODIUM PHOSPHATE. [Concomitant]
     Active Substance: DEXAMETHASONE SODIUM PHOSPHATE
     Route: 042
     Dates: start: 20191211, end: 20191211
  73. GLUTATHIONE REDUCED [Concomitant]
     Route: 065
     Dates: start: 20191114, end: 20191114
  74. POLYENE PHOSPHATIDYLCHOLINE [Concomitant]
     Active Substance: PHOSPHOLIPID
     Route: 065
     Dates: start: 20181015, end: 20181018
  75. LACTULOSE. [Concomitant]
     Active Substance: LACTULOSE
     Route: 065
     Dates: start: 20190630, end: 20190630
  76. DUPHALAC [Concomitant]
     Active Substance: LACTULOSE
     Indication: CONSTIPATION
     Route: 065
     Dates: start: 20191207, end: 20191207
  77. DEXAMETHASONE ACETATE [Concomitant]
     Active Substance: DEXAMETHASONE ACETATE
     Indication: ALLERGY PROPHYLAXIS
     Route: 048
     Dates: start: 20181014, end: 20181014
  78. LORATADINE. [Concomitant]
     Active Substance: LORATADINE
     Route: 065
     Dates: start: 20181128, end: 20181128
  79. LORATADINE. [Concomitant]
     Active Substance: LORATADINE
     Route: 065
     Dates: start: 20190901, end: 20190901
  80. CIMETIDINE [Concomitant]
     Active Substance: CIMETIDINE
     Route: 065
     Dates: start: 20190722, end: 20190722
  81. DEXAMETHASONE SODIUM PHOSPHATE. [Concomitant]
     Active Substance: DEXAMETHASONE SODIUM PHOSPHATE
     Route: 042
     Dates: start: 20181128, end: 20181128
  82. DEXAMETHASONE SODIUM PHOSPHATE. [Concomitant]
     Active Substance: DEXAMETHASONE SODIUM PHOSPHATE
     Route: 042
     Dates: start: 20191218, end: 20191218
  83. DEXAMETHASONE SODIUM PHOSPHATE. [Concomitant]
     Active Substance: DEXAMETHASONE SODIUM PHOSPHATE
     Route: 042
     Dates: start: 20191226, end: 20191226
  84. PALONOSETRON. [Concomitant]
     Active Substance: PALONOSETRON HYDROCHLORIDE
     Route: 065
     Dates: start: 20181105, end: 20181105
  85. OMEPRAZOLE SODIUM [Concomitant]
     Active Substance: OMEPRAZOLE SODIUM
     Route: 065
     Dates: start: 20191022, end: 20191024
  86. OMEPRAZOLE SODIUM [Concomitant]
     Active Substance: OMEPRAZOLE SODIUM
     Route: 065
     Dates: start: 20191114, end: 20191114
  87. GLUTATHIONE REDUCED [Concomitant]
     Route: 065
     Dates: start: 20181015, end: 20181018
  88. FUROSEMIDE. [Concomitant]
     Active Substance: FUROSEMIDE
     Indication: POLYURIA
     Route: 065
     Dates: start: 20181015, end: 20181016
  89. LACTULOSE. [Concomitant]
     Active Substance: LACTULOSE
     Route: 065
     Dates: start: 20191020, end: 20191023
  90. ISOSORBIDE MONONITRATE. [Concomitant]
     Active Substance: ISOSORBIDE MONONITRATE
     Indication: HYPERTENSION
     Route: 065
     Dates: start: 20191207, end: 20191207
  91. HIRUDOID [Concomitant]
     Active Substance: GLYCOSAMINOGLYCANS
     Route: 065
     Dates: start: 20191216, end: 20191216
  92. OMEPRAZOLE SODIUM [Concomitant]
     Active Substance: OMEPRAZOLE SODIUM
     Route: 065
     Dates: start: 20191225, end: 20191225
  93. REDUCED GLUTATHIONE SODIUM [Concomitant]
     Active Substance: GLUTATHIONE
     Route: 065
     Dates: start: 20191225, end: 20191225
  94. FELODIPINE. [Concomitant]
     Active Substance: FELODIPINE
     Indication: HYPERTENSION
     Route: 065
     Dates: start: 20191207, end: 20191208
  95. LORATADINE. [Concomitant]
     Active Substance: LORATADINE
     Route: 065
     Dates: start: 20181105, end: 20181105
  96. LORATADINE. [Concomitant]
     Active Substance: LORATADINE
     Route: 065
     Dates: start: 20190609, end: 20190609
  97. CIMETIDINE [Concomitant]
     Active Substance: CIMETIDINE
     Route: 065
     Dates: start: 20190701, end: 20190701
  98. CIMETIDINE [Concomitant]
     Active Substance: CIMETIDINE
     Route: 065
     Dates: start: 20191226, end: 20191226
  99. DEXAMETHASONE SODIUM PHOSPHATE. [Concomitant]
     Active Substance: DEXAMETHASONE SODIUM PHOSPHATE
     Route: 042
     Dates: start: 20181113, end: 20181113
  100. DEXAMETHASONE SODIUM PHOSPHATE. [Concomitant]
     Active Substance: DEXAMETHASONE SODIUM PHOSPHATE
     Route: 042
     Dates: start: 20191114, end: 20191114
  101. PALONOSETRON. [Concomitant]
     Active Substance: PALONOSETRON HYDROCHLORIDE
     Indication: PROPHYLAXIS OF NAUSEA AND VOMITING
     Route: 065
     Dates: start: 20181015, end: 20181015
  102. PALONOSETRON. [Concomitant]
     Active Substance: PALONOSETRON HYDROCHLORIDE
     Route: 065
     Dates: start: 20181128, end: 20181128
  103. PALONOSETRON. [Concomitant]
     Active Substance: PALONOSETRON HYDROCHLORIDE
     Route: 065
     Dates: start: 20190812, end: 20190812
  104. OMEPRAZOLE SODIUM [Concomitant]
     Active Substance: OMEPRAZOLE SODIUM
     Route: 065
     Dates: start: 20181128, end: 20181203
  105. GLUTATHIONE REDUCED [Concomitant]
     Route: 065
     Dates: start: 20181226, end: 20181229
  106. GLUTATHIONE REDUCED [Concomitant]
     Route: 065
     Dates: start: 20190901, end: 20190901
  107. FUROSEMIDE. [Concomitant]
     Active Substance: FUROSEMIDE
     Route: 065
     Dates: start: 20181226, end: 20181226
  108. RECOMBINANT HUMAN INTERLEUKIN-11 [Concomitant]
     Active Substance: OPRELVEKIN
     Indication: PLATELET COUNT DECREASED
     Route: 065
     Dates: start: 20181011, end: 20181012
  109. RECOMBINANT HUMAN INTERLEUKIN-11 [Concomitant]
     Active Substance: OPRELVEKIN
     Route: 065
     Dates: start: 20181130, end: 20181203
  110. CARBAZOCHROME SODIUM SULFONATE [Concomitant]
     Active Substance: CARBAZOCHROME SODIUM SULFONATE
     Indication: EPISTAXIS
     Route: 065
     Dates: start: 20181112, end: 20181112
  111. FRESH FROZEN PLASMA [Concomitant]
     Active Substance: HUMAN PLASMA
     Indication: EPISTAXIS
     Route: 065
     Dates: start: 20181112, end: 20181112
  112. PLACEBO [Suspect]
     Active Substance: UNSPECIFIED INGREDIENT
     Indication: OVARIAN CANCER
     Dosage: DATE OF MOST RECENT DOSE OF PLACEBO PRIOR TO AE AND SAE MYELOSUPPRESSION ONSET: 05/NOV/2018
     Route: 042
     Dates: start: 20180921
  113. PACLITAXEL. [Suspect]
     Active Substance: PACLITAXEL
     Indication: OVARIAN CANCER
     Dosage: DATE OF MOST RECENT DOSE OF PACLITAXEL (250 MG)  PRIOR TO AE AND SAE MYELOSUPPRESSION ONSET 05/NOV/2
     Route: 042
     Dates: start: 20180921
  114. CARBOPLATIN. [Suspect]
     Active Substance: CARBOPLATIN
     Indication: OVARIAN CANCER
     Dosage: DATE OF MOST RECENT DOSE (560MG) OF CARBOPLATIN PRIOR TO AE AND SAE MYELOSUPPRESSION ONSET 05/NOV/20
     Route: 042
     Dates: start: 20180921
  115. LORATADINE. [Concomitant]
     Active Substance: LORATADINE
     Route: 065
     Dates: start: 20181226, end: 20181226
  116. LORATADINE. [Concomitant]
     Active Substance: LORATADINE
     Route: 065
     Dates: start: 20190812, end: 20190812
  117. CIMETIDINE [Concomitant]
     Active Substance: CIMETIDINE
     Route: 065
     Dates: start: 20181226, end: 20181226
  118. CIMETIDINE [Concomitant]
     Active Substance: CIMETIDINE
     Route: 065
     Dates: start: 20191022, end: 20191022
  119. DEXAMETHASONE SODIUM PHOSPHATE. [Concomitant]
     Active Substance: DEXAMETHASONE SODIUM PHOSPHATE
     Route: 042
     Dates: start: 20191208, end: 20191208
  120. OMEPRAZOLE SODIUM [Concomitant]
     Active Substance: OMEPRAZOLE SODIUM
     Route: 065
     Dates: start: 20181105, end: 20181113
  121. GLUTATHIONE REDUCED [Concomitant]
     Route: 065
     Dates: start: 20181128, end: 20181203
  122. GLUTATHIONE REDUCED [Concomitant]
     Route: 065
     Dates: start: 20190701, end: 20190701
  123. CEFOPERAZONE;SULBACTAM [Concomitant]
     Active Substance: CEFOPERAZONE\SULBACTAM
     Indication: UPPER RESPIRATORY TRACT INFECTION
     Route: 065
     Dates: start: 20181111, end: 20181115
  124. BETAHISTINE [Concomitant]
     Active Substance: BETAHISTINE
     Indication: DIZZINESS
     Route: 065
     Dates: start: 20181228, end: 20181228
  125. LIDOCAINE HYDROCHLORIDE. [Concomitant]
     Active Substance: LIDOCAINE HYDROCHLORIDE
     Route: 065
     Dates: start: 20191223, end: 20191223

REACTIONS (2)
  - Platelet count decreased [Recovered/Resolved]
  - Bone marrow failure [Recovered/Resolved]

NARRATIVE: CASE EVENT DATE: 20181102
